FAERS Safety Report 5781539-3 (Version None)
Quarter: 2008Q2

REPORT INFORMATION
  Report Type: 
  Country: None (occurrence: None)
  Receive Date: 20080623
  Receipt Date: 20070509
  Transmission Date: 20081010
  Serious: No
  Sender: FDA-Public Use
  Company Number: US-ASTRAZENECA-2007UW11223

PATIENT
  Sex: Male

DRUGS (1)
  1. RHINOCORT [Suspect]
     Dosage: 120 METER SPRAY UNIT
     Route: 045

REACTIONS (2)
  - DRUG PRESCRIBING ERROR [None]
  - PHARYNGOLARYNGEAL PAIN [None]
